FAERS Safety Report 4318363-4 (Version None)
Quarter: 2004Q1

REPORT INFORMATION
  Report Type: 
  Country: None (occurrence: None)
  Receive Date: 20040315
  Receipt Date: 20031201
  Transmission Date: 20041129
  Serious: No
  Sender: FDA-Public Use
  Company Number: 2003188611US

PATIENT
  Age: 54 Year
  Sex: Male

DRUGS (3)
  1. BEXTRA [Suspect]
     Indication: ARTHRITIS
     Dosage: 10 MG
     Dates: start: 20031103, end: 20031101
  2. NAPROXEN [Concomitant]
  3. NEXIUM [Concomitant]

REACTIONS (1)
  - INFLAMMATION LOCALISED [None]
